FAERS Safety Report 12695075 (Version 4)
Quarter: 2020Q4

REPORT INFORMATION
  Report Type: Report from Study
  Country: DE (occurrence: JP)
  Receive Date: 20160829
  Receipt Date: 20201120
  Transmission Date: 20210113
  Serious: Yes (Life-Threatening, Hospitalization, Other)
  Sender: FDA-Public Use
  Company Number: JP-ELI_LILLY_AND_COMPANY-JP201608012449

PATIENT
  Age: 64 Year
  Sex: Male

DRUGS (2)
  1. MINOCYCLINE HYDROCHLORIDE. [Concomitant]
     Active Substance: MINOCYCLINE HYDROCHLORIDE
     Indication: PROPHYLAXIS
     Dosage: UNK UNK, UNKNOWN
     Route: 065
  2. CETUXIMAB. [Suspect]
     Active Substance: CETUXIMAB
     Indication: SQUAMOUS CELL CARCINOMA OF HEAD AND NECK
     Dosage: UNK UNK, UNKNOWN
     Route: 041
     Dates: start: 20140731, end: 20140925

REACTIONS (13)
  - Paronychia [Recovered/Resolved]
  - Dermatitis acneiform [Recovered/Resolved]
  - Mucosal infection [Recovered/Resolved]
  - Dry skin [Recovered/Resolved]
  - Stomatitis [Recovered/Resolved]
  - Pneumonitis [Recovered/Resolved]
  - Dysphagia [Recovered/Resolved]
  - Blood lactate dehydrogenase abnormal [Recovered/Resolved]
  - Pneumocystis jirovecii pneumonia [Unknown]
  - Pharyngeal inflammation [Recovered/Resolved]
  - Dry mouth [Recovered/Resolved]
  - Radiation skin injury [Recovered/Resolved]
  - Blood urea abnormal [Recovered/Resolved]

NARRATIVE: CASE EVENT DATE: 20140808
